APPROVED DRUG PRODUCT: LIFITEGRAST
Active Ingredient: LIFITEGRAST
Strength: 5%
Dosage Form/Route: SOLUTION/DROPS;OPHTHALMIC
Application: A215058 | Product #001
Applicant: INGENUS PHARMACEUTICALS LLC
Approved: Oct 3, 2024 | RLD: No | RS: No | Type: DISCN